FAERS Safety Report 9588627 (Version 1)
Quarter: 2013Q4

REPORT INFORMATION
  Report Type: Spontaneous
  Country: US (occurrence: US)
  Receive Date: 20131003
  Receipt Date: 20131003
  Transmission Date: 20140711
  Serious: No
  Sender: FDA-Public Use
  Company Number: US-AMGEN-USASP2012065300

PATIENT
  Age: 46 Year
  Sex: Male
  Weight: 92.97 kg

DRUGS (6)
  1. ENBREL [Suspect]
     Indication: PRODUCT USED FOR UNKNOWN INDICATION
     Dosage: 50 MG, 2 TIMES/WK
     Route: 058
  2. NAPROXEN [Concomitant]
     Dosage: 250 MG, UNK
  3. FISH OIL [Concomitant]
     Dosage: UNK
  4. VITAMIN C                          /00008001/ [Concomitant]
     Dosage: 500 MG, UNK
  5. MULTIVITAMINS, PLAIN [Concomitant]
     Dosage: UNK
  6. GLUCOSAMINE/CHONDROITIN            /01625901/ [Concomitant]
     Dosage: UNK

REACTIONS (2)
  - Injection site pain [Unknown]
  - Viral infection [Unknown]
